FAERS Safety Report 23038760 (Version 1)
Quarter: 2023Q4

REPORT INFORMATION
  Report Type: Spontaneous
  Country: US (occurrence: US)
  Receive Date: 20231006
  Receipt Date: 20231006
  Transmission Date: 20240109
  Serious: No
  Sender: FDA-Public Use
  Company Number: US-Indivior Limited-INDV-139325-2023

PATIENT
  Sex: Female

DRUGS (2)
  1. SUBLOCADE [Suspect]
     Active Substance: BUPRENORPHINE
     Indication: Drug dependence
     Dosage: 300 MILLIGRAM, QMO
     Route: 058
     Dates: start: 20230510
  2. SUBLOCADE [Suspect]
     Active Substance: BUPRENORPHINE

REACTIONS (9)
  - Feeling drunk [Unknown]
  - Nervousness [Not Recovered/Not Resolved]
  - Injection site pain [Not Recovered/Not Resolved]
  - Wrong technique in product usage process [Recovered/Resolved]
  - Incorrect route of product administration [Recovered/Resolved]
  - Injection site swelling [Not Recovered/Not Resolved]
  - Fatigue [Unknown]
  - Somnolence [Not Recovered/Not Resolved]
  - Drug withdrawal syndrome [Not Recovered/Not Resolved]

NARRATIVE: CASE EVENT DATE: 20230101
